APPROVED DRUG PRODUCT: BUPROPION HYDROCHLORIDE
Active Ingredient: BUPROPION HYDROCHLORIDE
Strength: 100MG
Dosage Form/Route: TABLET;ORAL
Application: A206975 | Product #002 | TE Code: AB
Applicant: HERITAGE PHARMA LABS INC
Approved: Aug 19, 2016 | RLD: No | RS: No | Type: RX